FAERS Safety Report 9341291 (Version 1)
Quarter: 2013Q2

REPORT INFORMATION
  Report Type: Spontaneous
  Country: US (occurrence: None)
  Receive Date: 20130610
  Receipt Date: 20130610
  Transmission Date: 20140414
  Serious: No
  Sender: FDA-Public Use
  Company Number: None

PATIENT
  Sex: 0

DRUGS (5)
  1. ESCITALOPRAM [Suspect]
  2. LEXAPRO [Suspect]
     Indication: DEPRESSION
     Dosage: STRENGTH: 10/20   1 PER DAY  MOUTH
     Route: 048
     Dates: start: 20030101, end: 20130301
  3. LEXAPRO [Suspect]
     Indication: SERUM SEROTONIN DECREASED
     Dosage: STRENGTH: 10/20   1 PER DAY  MOUTH
     Route: 048
     Dates: start: 20030101, end: 20130301
  4. LEXAPRO [Suspect]
     Indication: COMPULSIONS
     Dosage: STRENGTH: 10/20   1 PER DAY  MOUTH
     Route: 048
     Dates: start: 20030101, end: 20130301
  5. LEXAPRO [Suspect]
     Indication: CONDITION AGGRAVATED
     Dosage: STRENGTH: 10/20   1 PER DAY  MOUTH
     Route: 048
     Dates: start: 20030101, end: 20130301

REACTIONS (5)
  - Insomnia [None]
  - Feeling abnormal [None]
  - Adverse event [None]
  - Product substitution issue [None]
  - Product quality issue [None]
